FAERS Safety Report 7226869-3 (Version None)
Quarter: 2011Q1

REPORT INFORMATION
  Report Type: 
  Country: None (occurrence: None)
  Receive Date: 20110111
  Receipt Date: 20110111
  Transmission Date: 20110831
  Serious: Yes (Disabling)
  Sender: FDA-Public Use
  Company Number: None

PATIENT
  Age: 78 Year
  Sex: Female
  Weight: 54.4316 kg

DRUGS (3)
  1. FENTANYL-100 [Concomitant]
  2. TYLENOL-500 [Concomitant]
  3. RECLAST [Suspect]
     Indication: BONE DENSITY DECREASED
     Dates: start: 20101203

REACTIONS (11)
  - MUSCULOSKELETAL STIFFNESS [None]
  - JOINT RANGE OF MOTION DECREASED [None]
  - JOINT STIFFNESS [None]
  - LOCAL SWELLING [None]
  - INFLUENZA [None]
  - JOINT SWELLING [None]
  - HYPERSOMNIA [None]
  - ABASIA [None]
  - OEDEMA PERIPHERAL [None]
  - PAIN [None]
  - JAW DISORDER [None]
